FAERS Safety Report 24310207 (Version 1)
Quarter: 2024Q3

REPORT INFORMATION
  Report Type: Spontaneous
  Country: DE (occurrence: DE)
  Receive Date: 20240912
  Receipt Date: 20240912
  Transmission Date: 20241017
  Serious: Yes (Hospitalization, Other)
  Sender: DR REDDYS
  Company Number: DE-GERMAN-SPO/DEU/24/0013196

PATIENT
  Age: 76 Year
  Sex: Male

DRUGS (5)
  1. AZACITIDINE [Suspect]
     Active Substance: AZACITIDINE
     Indication: VEXAS syndrome
     Dosage: EVERY 4 WEEKS 7-DAY CYCLE WITH 75 MG/M2 BSA?(BODY SURFACE AREA) = 130.67 MG S.C.
     Route: 058
     Dates: start: 2023
  2. PREDNISOLONE [Concomitant]
     Active Substance: PREDNISOLONE
     Indication: VEXAS syndrome
     Dosage: ADMINISTERED FOR THREE DAYS AND SUBSEQUENTLY TAPERED TO 1 MG PER KILOGRAM OF BODY WEIGHT. WITHIN 48
     Route: 048
     Dates: start: 2023
  3. PREDNISOLONE [Concomitant]
     Active Substance: PREDNISOLONE
     Route: 048
  4. PREDNISOLONE [Concomitant]
     Active Substance: PREDNISOLONE
     Dosage: ADMINISTERED FOR THREE DAYS AND SUBSEQUENTLY TAPERED TO 1 MG PER KILOGRAM OF BODY WEIGHT
     Route: 048
     Dates: start: 202307
  5. PREDNISOLONE [Concomitant]
     Active Substance: PREDNISOLONE
     Route: 048

REACTIONS (2)
  - Drug ineffective for unapproved indication [Unknown]
  - Condition aggravated [Unknown]
